FAERS Safety Report 9880409 (Version 4)
Quarter: 2014Q1

REPORT INFORMATION
  Report Type: Report from Study
  Country: ES (occurrence: ES)
  Receive Date: 20140207
  Receipt Date: 20140306
  Transmission Date: 20141002
  Serious: Yes (Other)
  Sender: FDA-Public Use
  Company Number: ES-009507513-1401ESP008945

PATIENT
  Sex: Male
  Weight: 83 kg

DRUGS (6)
  1. BOCEPREVIR [Suspect]
     Indication: HEPATITIS C
     Dosage: 2400 MG, QD; STRENGTH: 200 MG
     Route: 048
     Dates: start: 2012, end: 201208
  2. PEGASYS [Suspect]
     Indication: HEPATITIS C
     Dosage: 180 MICROGRAM, QW
     Route: 058
     Dates: start: 20120510, end: 201211
  3. COPEGUS [Suspect]
     Indication: HEPATITIS C
     Dosage: 1200 MG, QD
     Route: 048
     Dates: start: 20120510, end: 201211
  4. METFORMIN [Concomitant]
     Dosage: 500 MG, TID
  5. HUMALOG [Concomitant]
  6. CAPTOPRIL [Concomitant]
     Dosage: 25 MG, QD

REACTIONS (1)
  - Toxic skin eruption [Recovered/Resolved]
